FAERS Safety Report 9245538 (Version 1)
Quarter: 2013Q2

REPORT INFORMATION
  Report Type: Spontaneous
  Country: BR (occurrence: BR)
  Receive Date: 20130422
  Receipt Date: 20130422
  Transmission Date: 20140414
  Serious: Yes (Other)
  Sender: FDA-Public Use
  Company Number: BR-JNJFOC-20130408271

PATIENT
  Age: 56 Year
  Sex: Female
  Weight: 58 kg

DRUGS (3)
  1. SIMPONI [Suspect]
     Indication: RHEUMATOID ARTHRITIS
     Dosage: 1ST DOSE
     Route: 058
     Dates: start: 201303
  2. IBUPROFEN [Concomitant]
     Indication: ARTHRALGIA
     Route: 065
  3. HARPAGOPHYTUM PROCUMBENS [Concomitant]
     Indication: ARTHRALGIA
     Route: 065

REACTIONS (2)
  - Chest pain [Recovered/Resolved]
  - Paraesthesia [Recovered/Resolved]
